FAERS Safety Report 22140668 (Version 3)
Quarter: 2023Q2

REPORT INFORMATION
  Report Type: Spontaneous
  Country: CL (occurrence: CL)
  Receive Date: 20230327
  Receipt Date: 20230502
  Transmission Date: 20230721
  Serious: Yes (Death, Other)
  Sender: FDA-Public Use
  Company Number: CL-PFIZER INC-PV202300054444

PATIENT
  Age: 63 Year
  Sex: Male

DRUGS (1)
  1. XELJANZ [Suspect]
     Active Substance: TOFACITINIB CITRATE
     Indication: Rheumatoid arthritis
     Dosage: UNK

REACTIONS (6)
  - Death [Fatal]
  - Pulmonary fibrosis [Unknown]
  - Anxiety [Unknown]
  - Stress [Unknown]
  - Tension [Unknown]
  - Discouragement [Unknown]

NARRATIVE: CASE EVENT DATE: 20230403
